FAERS Safety Report 17124355 (Version 1)
Quarter: 2019Q4

REPORT INFORMATION
  Report Type: Spontaneous
  Country: MY (occurrence: MY)
  Receive Date: 20191206
  Receipt Date: 20191206
  Transmission Date: 20200122
  Serious: Yes (Other)
  Sender: FDA-Public Use
  Company Number: MY-GLAXOSMITHKLINE-MY2019APC220602

PATIENT

DRUGS (1)
  1. ZINNAT [Suspect]
     Active Substance: CEFUROXIME
     Indication: PNEUMONIA
     Dosage: 110 MG, BID
     Route: 048

REACTIONS (3)
  - Pruritus [Recovering/Resolving]
  - Erythema [Recovering/Resolving]
  - Orbital oedema [Recovering/Resolving]
